FAERS Safety Report 16733177 (Version 2)
Quarter: 2020Q1

REPORT INFORMATION
  Report Type: Spontaneous
  Country: US (occurrence: US)
  Receive Date: 20190823
  Receipt Date: 20200213
  Transmission Date: 20200409
  Serious: Yes (Other)
  Sender: FDA-Public Use
  Company Number: US-ASTRAZENECA-2019SF18063

PATIENT
  Age: 24241 Day
  Sex: Female
  Weight: 86.2 kg

DRUGS (40)
  1. NEXIUM [Suspect]
     Active Substance: ESOMEPRAZOLE MAGNESIUM
     Indication: GASTROOESOPHAGEAL REFLUX DISEASE
     Route: 048
     Dates: start: 20130114
  2. TOPIRAMATE. [Concomitant]
     Active Substance: TOPIRAMATE
     Route: 065
     Dates: start: 20151217
  3. VENTOLIN HFA [Concomitant]
     Active Substance: ALBUTEROL SULFATE
     Dosage: 90 MCG
     Route: 065
     Dates: start: 20140701
  4. FLU VACCINE [Concomitant]
     Active Substance: INFLUENZA VIRUS VACCINE
     Route: 030
     Dates: start: 20141027
  5. METHOCARBAMOL. [Concomitant]
     Active Substance: METHOCARBAMOL
     Route: 048
     Dates: start: 20130123
  6. SIMVASTATIN. [Concomitant]
     Active Substance: SIMVASTATIN
     Indication: BLOOD CHOLESTEROL INCREASED
     Route: 065
     Dates: start: 20131216
  7. BUTALBITAL-ACETAMINOPHEN [Concomitant]
     Route: 065
     Dates: start: 20160118
  8. LORATADINE. [Concomitant]
     Active Substance: LORATADINE
     Route: 065
     Dates: start: 20151112
  9. VOLTAREN [Concomitant]
     Active Substance: DICLOFENAC SODIUM
     Dosage: 1%
     Route: 065
     Dates: start: 20150630
  10. CLONAZEPAM. [Concomitant]
     Active Substance: CLONAZEPAM
     Route: 065
     Dates: start: 20150521
  11. FLUTICASONE. [Concomitant]
     Active Substance: FLUTICASONE
     Dosage: 50 MCG
     Route: 065
     Dates: start: 20130304
  12. ZOSTAVAX [Concomitant]
     Active Substance: VARICELLA-ZOSTER VIRUS STRAIN OKA/MERCK LIVE ANTIGEN
     Route: 058
     Dates: start: 20140603
  13. BACTRIM DS [Concomitant]
     Active Substance: SULFAMETHOXAZOLE\TRIMETHOPRIM
     Route: 048
  14. SIMVASTATIN. [Concomitant]
     Active Substance: SIMVASTATIN
     Indication: BLOOD CHOLESTEROL INCREASED
     Route: 065
     Dates: start: 2013, end: 2014
  15. HYDROCODONE-ACETAMINOPHEN [Concomitant]
     Active Substance: ACETAMINOPHEN\HYDROCODONE
     Dosage: 10-325
     Route: 065
     Dates: start: 20130123
  16. DULERA [Concomitant]
     Active Substance: FORMOTEROL FUMARATE DIHYDRATE\MOMETASONE FUROATE
     Dosage: TWO TIMES DAILY
     Route: 065
     Dates: start: 20130123
  17. RISEDRONATE [Concomitant]
     Active Substance: RISEDRONATE SODIUM
     Route: 065
     Dates: start: 20180806
  18. NEXIUM [Suspect]
     Active Substance: ESOMEPRAZOLE MAGNESIUM
     Indication: GASTROOESOPHAGEAL REFLUX DISEASE
     Route: 048
     Dates: start: 20140107
  19. ZOLPIDEM [Concomitant]
     Active Substance: ZOLPIDEM TARTRATE
     Indication: SLEEP DISORDER
     Route: 065
     Dates: start: 20150221
  20. LISINOPRIL. [Concomitant]
     Active Substance: LISINOPRIL
     Indication: HYPERTENSION
     Route: 065
     Dates: start: 2013, end: 2016
  21. TYLENOL [Concomitant]
     Active Substance: ACETAMINOPHEN
     Indication: ANALGESIC THERAPY
     Route: 065
  22. ATENOLOL. [Concomitant]
     Active Substance: ATENOLOL
     Route: 065
     Dates: start: 20151030
  23. AMOXICILLIN. [Concomitant]
     Active Substance: AMOXICILLIN
     Route: 065
     Dates: start: 20141201
  24. EFFEXOR XR [Concomitant]
     Active Substance: VENLAFAXINE HYDROCHLORIDE
     Route: 065
     Dates: start: 20131014
  25. FLUCONAZOLE. [Concomitant]
     Active Substance: FLUCONAZOLE
     Route: 048
  26. ERGOCALCIFEROL. [Concomitant]
     Active Substance: ERGOCALCIFEROL
     Dosage: EVERY WEEK
     Route: 048
     Dates: start: 20180925
  27. TESSALON [Concomitant]
     Active Substance: BENZONATATE
     Route: 048
     Dates: start: 20171127
  28. NEXIUM [Suspect]
     Active Substance: ESOMEPRAZOLE MAGNESIUM
     Indication: GASTROOESOPHAGEAL REFLUX DISEASE
     Route: 048
     Dates: start: 201301, end: 201609
  29. NEXIUM [Suspect]
     Active Substance: ESOMEPRAZOLE MAGNESIUM
     Indication: GASTROOESOPHAGEAL REFLUX DISEASE
     Route: 048
     Dates: start: 20150108
  30. ATORVASTATIN [Concomitant]
     Active Substance: ATORVASTATIN
     Route: 065
     Dates: start: 20150712
  31. ALLERGY [Concomitant]
     Active Substance: UNSPECIFIED INGREDIENT
     Route: 065
     Dates: start: 20140802
  32. INFLUENZA WHOLE [Concomitant]
     Route: 030
     Dates: start: 20120928
  33. PREVACID [Concomitant]
     Active Substance: LANSOPRAZOLE
     Route: 048
     Dates: start: 20130123
  34. RANITIDINE. [Concomitant]
     Active Substance: RANITIDINE
     Route: 048
     Dates: start: 20130123
  35. NIFEDIPINE. [Concomitant]
     Active Substance: NIFEDIPINE
     Route: 065
     Dates: start: 20181101
  36. ZITHROMAX [Concomitant]
     Active Substance: AZITHROMYCIN DIHYDRATE
     Route: 048
     Dates: start: 20171127
  37. ANTIPYRINE-BENZOCAINE [Concomitant]
     Route: 065
     Dates: start: 20130123
  38. NEXIUM [Suspect]
     Active Substance: ESOMEPRAZOLE MAGNESIUM
     Indication: GASTROOESOPHAGEAL REFLUX DISEASE
     Route: 048
     Dates: start: 20131216
  39. ZOLPIDEM [Concomitant]
     Active Substance: ZOLPIDEM TARTRATE
     Indication: SLEEP DISORDER
     Route: 065
     Dates: start: 2013, end: 2016
  40. MONTELUKAST [Concomitant]
     Active Substance: MONTELUKAST SODIUM
     Route: 065
     Dates: start: 20180530

REACTIONS (1)
  - Chronic kidney disease [Not Recovered/Not Resolved]

NARRATIVE: CASE EVENT DATE: 20130123
